FAERS Safety Report 4622555-4 (Version None)
Quarter: 2005Q1

REPORT INFORMATION
  Report Type: 
  Country: None (occurrence: None)
  Receive Date: 20050325
  Receipt Date: 20050325
  Transmission Date: 20050727
  Serious: No
  Sender: FDA-Public Use
  Company Number: None

PATIENT
  Age: 59 Year
  Sex: Male
  Weight: 111 kg

DRUGS (1)
  1. FERROUS SULFATE  325MG  GOLDLINE [Suspect]
     Indication: BLOOD IRON DECREASED
     Dosage: 325MG PO TID
     Route: 048
     Dates: start: 20050130

REACTIONS (1)
  - ABDOMINAL PAIN [None]
